FAERS Safety Report 17314369 (Version 2)
Quarter: 2020Q1

REPORT INFORMATION
  Report Type: Spontaneous
  Country: US (occurrence: US)
  Receive Date: 20200124
  Receipt Date: 20200130
  Transmission Date: 20200409
  Serious: Yes (Other)
  Sender: FDA-Public Use
  Company Number: US-GW PHARMA-202001USGW00197

PATIENT

DRUGS (1)
  1. EPIDIOLEX [Suspect]
     Active Substance: CANNABIDIOL
     Indication: SEIZURE
     Dosage: 130 MILLIGRAM, BID
     Route: 048
     Dates: start: 201911

REACTIONS (3)
  - Vomiting [Unknown]
  - Extra dose administered [Unknown]
  - Seizure [Recovering/Resolving]
